FAERS Safety Report 5848166-0 (Version None)
Quarter: 2008Q3

REPORT INFORMATION
  Report Type: 
  Country: None (occurrence: None)
  Receive Date: 20080818
  Receipt Date: 20080808
  Transmission Date: 20090109
  Serious: Yes (Death)
  Sender: FDA-Public Use
  Company Number: A0742943A

PATIENT

DRUGS (3)
  1. ADVAIR DISKUS 100/50 [Suspect]
     Indication: DRUG USE FOR UNKNOWN INDICATION
     Dosage: 2PUFF TWICE PER DAY
     Route: 055
  2. SEREVENT [Suspect]
     Indication: DRUG USE FOR UNKNOWN INDICATION
     Dosage: 50MCG TWICE PER DAY
     Route: 055
  3. SPIRIVA [Suspect]
     Indication: DRUG USE FOR UNKNOWN INDICATION
     Dosage: 18MCG PER DAY
     Route: 055

REACTIONS (11)
  - ARRHYTHMIA [None]
  - CANDIDIASIS [None]
  - CHRONIC OBSTRUCTIVE PULMONARY DISEASE [None]
  - CONDITION AGGRAVATED [None]
  - COUGH [None]
  - DIZZINESS [None]
  - DRY MOUTH [None]
  - DYSPHONIA [None]
  - MYOCARDIAL INFARCTION [None]
  - RESPIRATORY FAILURE [None]
  - TREMOR [None]
